FAERS Safety Report 6889003-5 (Version None)
Quarter: 2010Q3

REPORT INFORMATION
  Report Type: 
  Country: None (occurrence: None)
  Receive Date: 20100730
  Receipt Date: 20071129
  Transmission Date: 20110219
  Serious: No
  Sender: FDA-Public Use
  Company Number: US-PFIZER INC-2007101337

PATIENT
  Age: 62 Year
  Sex: Female

DRUGS (5)
  1. LIPITOR [Suspect]
  2. ZETIA [Concomitant]
  3. PLAVIX [Concomitant]
  4. TOPROL-XL [Concomitant]
  5. ACETAMINOPHEN [Concomitant]
     Indication: ARTHRITIS

REACTIONS (2)
  - ARTHRALGIA [None]
  - NODULE [None]
